FAERS Safety Report 8281513-1 (Version None)
Quarter: 2012Q2

REPORT INFORMATION
  Report Type: 
  Country: None (occurrence: None)
  Receive Date: 20120413
  Receipt Date: 20120404
  Transmission Date: 20120825
  Serious: Yes (Hospitalization)
  Sender: FDA-Public Use
  Company Number: SE-PFIZER INC-2012089302

PATIENT
  Age: 76 Year
  Sex: Male

DRUGS (6)
  1. DIAZEPAM [Concomitant]
     Dosage: 10 MG, NIGHTLY
     Dates: start: 20120127, end: 20120227
  2. WARFARIN SODIUM [Concomitant]
     Dosage: UNK
  3. METOPROLOL [Concomitant]
     Dosage: UNK
  4. CORDARONE [Suspect]
     Indication: ATRIAL FIBRILLATION
     Dosage: 200 MG, DAILY
     Route: 048
     Dates: start: 20111130, end: 20120227
  5. ENALAPRIL [Concomitant]
     Dosage: UNK
  6. OMEPRAZOLE [Concomitant]
     Dosage: UNK

REACTIONS (5)
  - FATIGUE [None]
  - DYSARTHRIA [None]
  - VOMITING [None]
  - MUSCULAR WEAKNESS [None]
  - DIZZINESS [None]
